FAERS Safety Report 13784677 (Version 1)
Quarter: 2017Q3

REPORT INFORMATION
  Report Type: Spontaneous
  Country: CN (occurrence: CN)
  Receive Date: 20170725
  Receipt Date: 20170725
  Transmission Date: 20171127
  Serious: Yes (Other)
  Sender: FDA-Public Use
  Company Number: CN-ELI_LILLY_AND_COMPANY-CN201707007259

PATIENT
  Age: 63 Year
  Sex: Female
  Weight: 50 kg

DRUGS (3)
  1. NUO XIN [Suspect]
     Active Substance: CISPLATIN
     Indication: PRODUCT USED FOR UNKNOWN INDICATION
     Dosage: 40 MG, CYCLICAL (ON DAY 1 OF EVERY 21 DAY CYCLE)
     Route: 041
     Dates: start: 20170207
  2. GEMZAR [Suspect]
     Active Substance: GEMCITABINE HYDROCHLORIDE
     Indication: PRODUCT USED FOR UNKNOWN INDICATION
     Dosage: 1000 MG, CYCLICAL ON DAY 1 AND 8 OF EVERY 21 DAY CYCLE
     Route: 041
     Dates: start: 20170207
  3. NUO XIN [Suspect]
     Active Substance: CISPLATIN
     Dosage: 30 MG, CYCLICAL (ON DAY 2-3 OF EVERY 21 DAY CYCLE)
     Route: 041
     Dates: start: 20170208, end: 20170209

REACTIONS (1)
  - Bone marrow failure [Recovering/Resolving]

NARRATIVE: CASE EVENT DATE: 20170313
